FAERS Safety Report 8577762 (Version 3)
Quarter: 2012Q4

REPORT INFORMATION
  Report Type: 
  Country: US (occurrence: US)
  Receive Date: 20120524
  Receipt Date: 20120919
  Transmission Date: 20130627
  Serious: Yes (Disabling, Other)
  Sender: FDA-Public Use
  Company Number: US-AMGEN-USASP2012031883

PATIENT
  Age: 54 Year
  Sex: Female

DRUGS (3)
  1. PROCRIT [Suspect]
     Indication: ADIPOSIS DOLOROSA
     Dosage: 40000 IU, 3 times/wk
     Route: 058
     Dates: start: 2006, end: 2007
  2. PROCRIT [Suspect]
     Indication: ANAEMIA
     Dosage: 8000 IU, 3 times/wk
     Dates: start: 2011, end: 2011
  3. PROCRIT [Suspect]
     Indication: PANCYTOPENIA

REACTIONS (10)
  - Adiposis dolorosa [Not Recovered/Not Resolved]
  - Diabetes mellitus [Not Recovered/Not Resolved]
  - Hypertension [Not Recovered/Not Resolved]
  - Haemoglobin abnormal [Unknown]
  - Weight increased [Not Recovered/Not Resolved]
  - Weight decreased [Recovered/Resolved]
  - Skin mass [Not Recovered/Not Resolved]
  - CD8 lymphocytes abnormal [Unknown]
  - Therapeutic response unexpected [Recovered/Resolved]
  - Therapeutic response decreased [Not Recovered/Not Resolved]
